FAERS Safety Report 16048602 (Version 1)
Quarter: 2019Q1

REPORT INFORMATION
  Report Type: Spontaneous
  Country: US (occurrence: US)
  Receive Date: 20190307
  Receipt Date: 20190307
  Transmission Date: 20190418
  Serious: No
  Sender: FDA-Public Use
  Company Number: US-SA-2019SA062652

PATIENT
  Age: 50 Year
  Sex: Female

DRUGS (5)
  1. VITAMIN D3 [Concomitant]
     Active Substance: CHOLECALCIFEROL
  2. FLUOCINOLONE [Concomitant]
     Active Substance: FLUOCINOLONE
  3. METHYLPREDNISOLONE. [Concomitant]
     Active Substance: METHYLPREDNISOLONE
  4. DUPIXENT [Suspect]
     Active Substance: DUPILUMAB
     Indication: DERMATITIS ATOPIC
     Dosage: 1 DF, QOW
     Route: 058
     Dates: start: 201901
  5. TRIAMCINOLONE [Concomitant]
     Active Substance: TRIAMCINOLONE

REACTIONS (3)
  - Swelling [Recovering/Resolving]
  - Pain [Recovering/Resolving]
  - Feeling hot [Recovering/Resolving]
